FAERS Safety Report 18825478 (Version 1)
Quarter: 2021Q1

REPORT INFORMATION
  Report Type: Report from Study
  Country: US (occurrence: US)
  Receive Date: 20210202
  Receipt Date: 20210202
  Transmission Date: 20210419
  Serious: Yes (Hospitalization)
  Sender: FDA-Public Use
  Company Number: US-PFIZER INC-2019-05952

PATIENT
  Age: 66 Year
  Sex: Female
  Weight: 70.5 kg

DRUGS (19)
  1. BINIMETINIB [Suspect]
     Active Substance: BINIMETINIB
     Dosage: 30 MG AM 15 MG PM
     Route: 048
     Dates: start: 20190720
  2. ONDANSETRON [Concomitant]
     Active Substance: ONDANSETRON
     Indication: NAUSEA
     Dosage: UNK
     Dates: start: 20190503
  3. LIPITOR [Concomitant]
     Active Substance: ATORVASTATIN CALCIUM
     Indication: HYPERLIPIDAEMIA
     Dosage: UNK
     Dates: start: 20180101, end: 20190712
  4. MAGNESIUM OXIDE. [Concomitant]
     Active Substance: MAGNESIUM OXIDE
     Indication: HYPOMAGNESAEMIA
     Dosage: UNK
     Dates: start: 20190530, end: 20190712
  5. BINIMETINIB [Suspect]
     Active Substance: BINIMETINIB
     Indication: GASTROINTESTINAL STROMAL TUMOUR
     Dosage: 30 MG, 2X/DAY
     Route: 048
     Dates: start: 20190517, end: 20190708
  6. IMATINIB. [Suspect]
     Active Substance: IMATINIB MESYLATE
     Indication: GASTROINTESTINAL STROMAL TUMOUR
     Dosage: 400 MG, 1X/DAY
     Route: 048
     Dates: start: 20190503, end: 20190711
  7. IMATINIB. [Suspect]
     Active Substance: IMATINIB MESYLATE
     Dosage: 400.00 MG, 1X/DAY
     Route: 048
     Dates: start: 20190720
  8. COLACE [Concomitant]
     Active Substance: DOCUSATE SODIUM
     Indication: FAECES HARD
     Dosage: UNK
     Dates: start: 20190101
  9. TOBRAMYCIN AND DEXAMETHASONE [Concomitant]
     Active Substance: DEXAMETHASONE\TOBRAMYCIN
     Indication: EYE IRRITATION
     Dosage: UNK
     Dates: start: 20190612, end: 20190712
  10. ONDANSETRON [Concomitant]
     Active Substance: ONDANSETRON
     Indication: VOMITING
  11. ATENOLOL. [Concomitant]
     Active Substance: ATENOLOL
     Indication: HYPERTENSION
     Dosage: UNK
     Dates: start: 20070101
  12. FUROSEMIDE. [Concomitant]
     Active Substance: FUROSEMIDE
     Indication: OEDEMA PERIPHERAL
     Dosage: UNK
     Dates: start: 20190614, end: 20190712
  13. BACTRIM [Concomitant]
     Active Substance: SULFAMETHOXAZOLE\TRIMETHOPRIM
     Indication: INFECTION
     Dosage: UNK
     Dates: start: 20190701, end: 20190703
  14. XANAX [Concomitant]
     Active Substance: ALPRAZOLAM
     Indication: ANXIETY
     Dosage: UNK
     Dates: start: 20190517
  15. SERTRALINE [Concomitant]
     Active Substance: SERTRALINE HYDROCHLORIDE
     Indication: AFFECTIVE DISORDER
     Dosage: UNK
     Dates: start: 20040101
  16. IMODIUM [Concomitant]
     Active Substance: LOPERAMIDE HYDROCHLORIDE
     Indication: DIARRHOEA
     Dosage: UNK
     Dates: start: 20190522
  17. ACETAMINOPHEN. [Concomitant]
     Active Substance: ACETAMINOPHEN
     Indication: BACK PAIN
     Dosage: UNK, AS NEEDED
     Dates: start: 20190418
  18. SALINE NASAL MIST [Concomitant]
     Indication: UPPER-AIRWAY COUGH SYNDROME
     Dosage: UNK, AS NEEDED
     Dates: start: 20160101
  19. MIRALAX [Concomitant]
     Active Substance: POLYETHYLENE GLYCOL 3350
     Indication: CONSTIPATION
     Dosage: UNK, AS NEEDED
     Dates: start: 20190104

REACTIONS (1)
  - Failure to thrive [Recovered/Resolved]

NARRATIVE: CASE EVENT DATE: 20190712
